FAERS Safety Report 23334968 (Version 2)
Quarter: 2023Q4

REPORT INFORMATION
  Report Type: Spontaneous
  Country: JP (occurrence: JP)
  Receive Date: 20231225
  Receipt Date: 20231231
  Transmission Date: 20240109
  Serious: Yes (Hospitalization)
  Sender: FDA-Public Use
  Company Number: JP-KYOWAKIRIN-2023KK019953

PATIENT
  Age: 81 Year
  Sex: Female

DRUGS (1)
  1. DARBEPOETIN ALFA [Suspect]
     Active Substance: DARBEPOETIN ALFA
     Indication: Myelodysplastic syndrome
     Dosage: 30 MICROGRAM, Q2WK
     Route: 058

REACTIONS (4)
  - Hospitalisation [Unknown]
  - Off label use [Unknown]
  - Drug ineffective [Unknown]
  - Anaemia [Unknown]
